FAERS Safety Report 25981132 (Version 1)
Quarter: 2025Q4

REPORT INFORMATION
  Report Type: Spontaneous
  Country: CN (occurrence: CN)
  Receive Date: 20251030
  Receipt Date: 20251030
  Transmission Date: 20260118
  Serious: Yes (Other)
  Sender: ELI LILLY AND COMPANY
  Company Number: CN-ELI_LILLY_AND_COMPANY-CN202510029627

PATIENT
  Age: 60 Year
  Sex: Female
  Weight: 57 kg

DRUGS (2)
  1. GEMZAR [Suspect]
     Active Substance: GEMCITABINE HYDROCHLORIDE
     Indication: Ovarian cancer
     Dosage: 1200 MG, SINGLE
     Route: 041
     Dates: start: 20250930, end: 20250930
  2. SODIUM CHLORIDE [Concomitant]
     Active Substance: SODIUM CHLORIDE
     Indication: Ovarian cancer
     Dosage: 100 ML, SINGLE
     Route: 041
     Dates: start: 20250930, end: 20250930

REACTIONS (5)
  - Lip discolouration [Recovered/Resolved]
  - Throat tightness [Recovered/Resolved]
  - Palpitations [Recovered/Resolved]
  - Chest discomfort [Recovered/Resolved]
  - Bronchospasm [Recovered/Resolved]

NARRATIVE: CASE EVENT DATE: 20250930
